FAERS Safety Report 4901349-6 (Version None)
Quarter: 2006Q1

REPORT INFORMATION
  Report Type: 
  Country: None (occurrence: None)
  Receive Date: 20060202
  Receipt Date: 20060124
  Transmission Date: 20060701
  Serious: Yes (Hospitalization)
  Sender: FDA-Public Use
  Company Number: TPA2006A00138

PATIENT
  Age: 76 Year
  Sex: Male
  Weight: 68.0396 kg

DRUGS (7)
  1. ACTOS [Suspect]
     Indication: DIABETES MELLITUS NON-INSULIN-DEPENDENT
     Dosage: 30 MG, 1 IN 1 D, PER ORAL
     Route: 048
     Dates: start: 20030124
  2. GLUCOVANCE [Concomitant]
  3. TRICOR [Concomitant]
  4. COZAAR [Concomitant]
  5. TOPROL XL (METOPROLOL SUCCINATR) (TABLETS) [Concomitant]
  6. FUROSEMIDE [Concomitant]
  7. ZETIA [Concomitant]

REACTIONS (3)
  - ANAEMIA [None]
  - CARDIAC FAILURE CONGESTIVE [None]
  - GASTROENTERITIS SALMONELLA [None]
